FAERS Safety Report 7915890-5 (Version None)
Quarter: 2011Q4

REPORT INFORMATION
  Report Type: 
  Country: None (occurrence: None)
  Receive Date: 20111115
  Receipt Date: 20110803
  Transmission Date: 20120403
  Serious: No
  Sender: FDA-Public Use
  Company Number: US-BAYER-2011-071166

PATIENT

DRUGS (3)
  1. ULTRAM [Concomitant]
  2. ASPIRIN [Suspect]
     Indication: TOOTHACHE
  3. ALEVE (CAPLET) [Suspect]
     Indication: GINGIVAL PAIN
     Route: 048

REACTIONS (4)
  - GINGIVAL PAIN [None]
  - ORAL DISCOMFORT [None]
  - ORAL PAIN [None]
  - INFLAMMATION [None]
